FAERS Safety Report 9449772 (Version 1)
Quarter: 2013Q3

REPORT INFORMATION
  Report Type: Spontaneous
  Country: TW (occurrence: TW)
  Receive Date: 20130809
  Receipt Date: 20130809
  Transmission Date: 20140515
  Serious: Yes (Death)
  Sender: FDA-Public Use
  Company Number: TW-CUBIST PHARMACEUTICALS, INC.-2013CBST000675

PATIENT
  Sex: 0

DRUGS (2)
  1. CUBICIN [Suspect]
     Indication: ENDOCARDITIS
     Dosage: UNK UNK, UNK
     Route: 065
  2. CUBICIN [Suspect]
     Indication: STAPHYLOCOCCAL BACTERAEMIA

REACTIONS (6)
  - Cardiac valve replacement complication [Fatal]
  - Staphylococcal bacteraemia [Fatal]
  - Abscess [None]
  - Fistula [None]
  - Shock [None]
  - Atrioventricular block [None]
